FAERS Safety Report 15066185 (Version 1)
Quarter: 2018Q2

REPORT INFORMATION
  Report Type: Spontaneous
  Country: US (occurrence: US)
  Receive Date: 20180626
  Receipt Date: 20180626
  Transmission Date: 20180711
  Serious: No
  Sender: FDA-Public Use
  Company Number: US-TEVA-2018-US-912897

PATIENT
  Sex: Male

DRUGS (1)
  1. CETIRIZINE W/PSEUDOEPHEDRINE [Suspect]
     Active Substance: CETIRIZINE HYDROCHLORIDE\PSEUDOEPHEDRINE HYDROCHLORIDE
     Indication: HYPERSENSITIVITY
     Dosage: 1 DF = CETIRIZINE HYDROCHLORIDE 5 MG + PSEUDOEPHEDRINE HYDROCHLORIDE 120 MG
     Route: 048
     Dates: start: 201806, end: 201806

REACTIONS (2)
  - Drug ineffective [Unknown]
  - Somnolence [Unknown]
